FAERS Safety Report 8113709-3 (Version None)
Quarter: 2012Q1

REPORT INFORMATION
  Report Type: 
  Country: None (occurrence: None)
  Receive Date: 20120203
  Receipt Date: 20120127
  Transmission Date: 20120608
  Serious: Yes (Other)
  Sender: FDA-Public Use
  Company Number: US-ROXANE LABORATORIES, INC.-2012-RO-00566RO

PATIENT
  Age: 58 Year
  Sex: Male

DRUGS (2)
  1. TACROLIMUS [Suspect]
  2. MYCOPHENOLATE MEFETIL [Suspect]

REACTIONS (5)
  - CACHEXIA [None]
  - BILE DUCT OBSTRUCTION [None]
  - WEIGHT DECREASED [None]
  - BILE DUCT STONE [None]
  - PANCREATIC CARCINOMA [None]
